FAERS Safety Report 20026973 (Version 2)
Quarter: 2021Q4

REPORT INFORMATION
  Report Type: Report from Study
  Country: FR (occurrence: FR)
  Receive Date: 20211103
  Receipt Date: 20211220
  Transmission Date: 20220304
  Serious: Yes (Hospitalization, Other)
  Sender: FDA-Public Use
  Company Number: FR-BRISTOL-MYERS SQUIBB COMPANY-BMS-2021-111741

PATIENT
  Age: 76 Year
  Sex: Male

DRUGS (1)
  1. NIVOLUMAB [Suspect]
     Active Substance: NIVOLUMAB
     Indication: Non-small cell lung cancer
     Dosage: 240 MILLIGRAM, QMO
     Route: 042
     Dates: start: 20210413

REACTIONS (4)
  - Vascular device infection [Recovered/Resolved]
  - General physical condition abnormal [Recovered/Resolved]
  - Bacterial infection [Unknown]
  - Off label use [Unknown]

NARRATIVE: CASE EVENT DATE: 20211009
